FAERS Safety Report 5831450-4 (Version None)
Quarter: 2008Q3

REPORT INFORMATION
  Report Type: 
  Country: None (occurrence: None)
  Receive Date: 20080801
  Receipt Date: 20080721
  Transmission Date: 20090109
  Serious: Yes (Other)
  Sender: FDA-Public Use
  Company Number: US-PFIZER INC-2008060654

PATIENT
  Sex: Female
  Weight: 80 kg

DRUGS (7)
  1. GEODON [Suspect]
     Indication: PARANOIA
  2. GEODON [Suspect]
     Indication: ANXIETY
  3. GEODON [Suspect]
     Indication: FLIGHT OF IDEAS
  4. GEODON [Suspect]
     Indication: DEPRESSION
  5. LITHIUM [Concomitant]
  6. KLONOPIN [Concomitant]
  7. CELEXA [Concomitant]

REACTIONS (4)
  - BLINDNESS [None]
  - DYSTONIA [None]
  - IMPAIRED DRIVING ABILITY [None]
  - PARKINSONISM [None]
